FAERS Safety Report 23389264 (Version 1)
Quarter: 2024Q1

REPORT INFORMATION
  Report Type: Spontaneous
  Country: US (occurrence: US)
  Receive Date: 20240110
  Receipt Date: 20240110
  Transmission Date: 20240410
  Serious: Yes (Disabling, Other)
  Sender: FDA-Public Use
  Company Number: US-REGENERON PHARMACEUTICALS, INC.-2022-161844

PATIENT
  Sex: Female

DRUGS (4)
  1. EYLEA [Suspect]
     Active Substance: AFLIBERCEPT
     Indication: Neovascular age-related macular degeneration
     Dosage: 2 MG; EVERY 8 WEEKS; FORMULATION: PRE-FILLED SYRINGE (GERRESHEIMER), LEFT EYE
  2. EYLEA [Suspect]
     Active Substance: AFLIBERCEPT
     Dosage: 2 MG; EVERY 4 WEEKS; FORMULATION: PRE-FILLED SYRINGE (GERRESHEIMER), RIGHT EYE
  3. EYLEA [Suspect]
     Active Substance: AFLIBERCEPT
     Dosage: 2 MG; EVERY 4 WEEKS; FORMULATION: PRE-FILLED SYRINGE (GERRESHEIMER), RIGHT EYE
     Dates: end: 2022
  4. EYLEA [Suspect]
     Active Substance: AFLIBERCEPT
     Dosage: 2 MG; EVERY 8 WEEKS; FORMULATION: PRE-FILLED SYRINGE (GERRESHEIMER), LEFT EYE

REACTIONS (2)
  - Cerebrovascular accident [Unknown]
  - Product dose omission issue [Unknown]

NARRATIVE: CASE EVENT DATE: 20220101
